FAERS Safety Report 18721220 (Version 3)
Quarter: 2021Q1

REPORT INFORMATION
  Report Type: Spontaneous
  Country: DE (occurrence: DE)
  Receive Date: 20210109
  Receipt Date: 20210216
  Transmission Date: 20210419
  Serious: Yes (Life-Threatening, Hospitalization, Other)
  Sender: FDA-Public Use
  Company Number: DE-ACCORD-213463

PATIENT
  Age: 58 Year
  Sex: Female

DRUGS (2)
  1. TEMOZOLOMIDE. [Suspect]
     Active Substance: TEMOZOLOMIDE
     Indication: NEUROENDOCRINE TUMOUR
     Dosage: REDUCED TO 150 MG/M2 1 CYCLE
     Route: 048
     Dates: start: 201906, end: 201907
  2. CAPECITABINE. [Suspect]
     Active Substance: CAPECITABINE
     Indication: NEUROENDOCRINE TUMOUR
     Dosage: REDUCED TO 538 MG/M2?540 MG/M2 FROM JUN?2019 TO JUL?2019
     Route: 048
     Dates: start: 201906, end: 201907

REACTIONS (5)
  - Mastitis [Recovered/Resolved]
  - Pneumonia fungal [Recovered/Resolved]
  - Neutropenic sepsis [Recovered/Resolved]
  - Off label use [Unknown]
  - Febrile bone marrow aplasia [Recovered/Resolved]

NARRATIVE: CASE EVENT DATE: 201907
